FAERS Safety Report 8820154 (Version 2)
Quarter: 2012Q4

REPORT INFORMATION
  Report Type: 
  Country: IE (occurrence: IE)
  Receive Date: 20121001
  Receipt Date: 20121226
  Transmission Date: 20130627
  Serious: Yes (Hospitalization, Other)
  Sender: FDA-Public Use
  Company Number: IE-ROCHE-1139678

PATIENT
  Age: 59 Year
  Sex: Female

DRUGS (25)
  1. XOLAIR [Suspect]
     Indication: ASTHMA
     Route: 058
     Dates: start: 20120727
  2. XOLAIR [Suspect]
     Route: 058
     Dates: start: 20120822
  3. XOLAIR [Suspect]
     Route: 058
     Dates: start: 20120919
  4. XOLAIR [Suspect]
     Route: 065
     Dates: start: 20121114
  5. XOLAIR [Suspect]
     Route: 065
     Dates: start: 20121212
  6. COMBIVIR [Concomitant]
     Route: 065
  7. GLYCERYL TRINITRATE [Concomitant]
     Route: 065
  8. THEOPHYLLINE [Concomitant]
  9. ALENDRONATE [Concomitant]
  10. BROMAZEPAM [Concomitant]
  11. LYRICA [Concomitant]
  12. SYMBICORT [Concomitant]
  13. PREDNISOLONE [Concomitant]
  14. PRAVASTATIN [Concomitant]
  15. DILTIAZEM [Concomitant]
  16. MONTELUKAST [Concomitant]
  17. AMITRIPTYLINE [Concomitant]
  18. OMEPRAZOLE [Concomitant]
  19. GALFER [Concomitant]
  20. TRAMADOL [Concomitant]
  21. ZOPICLON [Concomitant]
  22. BUPRENORPHINE [Concomitant]
  23. DIFENE [Concomitant]
  24. CANESTEN [Concomitant]
  25. FLUCONAZOLE [Concomitant]

REACTIONS (3)
  - Urinary tract infection [Recovered/Resolved]
  - Transient ischaemic attack [Unknown]
  - Blood pressure systolic increased [Unknown]
